FAERS Safety Report 7105368-3 (Version None)
Quarter: 2010Q4

REPORT INFORMATION
  Report Type: 
  Country: None (occurrence: None)
  Receive Date: 20101110
  Receipt Date: 20101029
  Transmission Date: 20110411
  Serious: No
  Sender: FDA-Public Use
  Company Number: JPI-P-012287

PATIENT
  Age: 69 Year
  Sex: Male

DRUGS (1)
  1. XYREM [Suspect]
     Indication: SOMNOLENCE
     Dosage: 4.5 GM (2.25 GM, 2 IN 1 D), ORAL
     Route: 048
     Dates: start: 20100803, end: 20100101

REACTIONS (5)
  - DIZZINESS [None]
  - FATIGUE [None]
  - IRRITABILITY [None]
  - SWELLING [None]
  - TINNITUS [None]
